FAERS Safety Report 11403386 (Version 1)
Quarter: 2015Q3

REPORT INFORMATION
  Report Type: Spontaneous
  Country: US (occurrence: None)
  Receive Date: 20150820
  Receipt Date: 20150820
  Transmission Date: 20151125
  Serious: No
  Sender: FDA-Public Use
  Company Number: None

PATIENT
  Age: 71 Year
  Sex: Female

DRUGS (1)
  1. COPAXONE [Suspect]
     Active Substance: GLATIRAMER ACETATE
     Indication: MULTIPLE SCLEROSIS
     Dosage: GIVEN INTO/ UNDER THE SKIN
     Dates: start: 20140801, end: 20150819

REACTIONS (3)
  - Chills [None]
  - Influenza like illness [None]
  - Muscle spasms [None]

NARRATIVE: CASE EVENT DATE: 20140312
